FAERS Safety Report 5570818-0 (Version None)
Quarter: 2007Q4

REPORT INFORMATION
  Report Type: 
  Country: None (occurrence: None)
  Receive Date: 20071221
  Receipt Date: 20071211
  Transmission Date: 20080405
  Serious: Yes (Hospitalization, Other)
  Sender: FDA-Public Use
  Company Number: US-ELI_LILLY_AND_COMPANY-US200712002376

PATIENT
  Sex: Female

DRUGS (3)
  1. ZYPREXA [Suspect]
  2. DEPAKOTE [Concomitant]
  3. RISPERDAL [Concomitant]
     Indication: HYPERTENSION

REACTIONS (4)
  - HOSPITALISATION [None]
  - INSOMNIA [None]
  - LOSS OF CONSCIOUSNESS [None]
  - STOMACH DISCOMFORT [None]
